FAERS Safety Report 5045935-4 (Version None)
Quarter: 2006Q3

REPORT INFORMATION
  Report Type: 
  Country: None (occurrence: None)
  Receive Date: 20060710
  Receipt Date: 20060627
  Transmission Date: 20061208
  Serious: Yes (Other)
  Sender: FDA-Public Use
  Company Number: CH-JNJFOC-20060606094

PATIENT
  Age: 49 Year
  Sex: Male

DRUGS (3)
  1. RISPERDAL [Suspect]
     Indication: SCHIZOPHRENIA
  2. QUETIAPINE FUMARATE [Concomitant]
  3. BIPERIDEN HYDROCHLORIDE TAB [Concomitant]

REACTIONS (1)
  - STATUS EPILEPTICUS [None]
